FAERS Safety Report 7149476 (Version 2)
Quarter: 2014Q1

REPORT INFORMATION
  Report Type: Spontaneous
  Country: NO (occurrence: NO)
  Receive Date: 20091015
  Receipt Date: 20140131
  Transmission Date: 20141002
  Serious: Yes (Other)
  Sender: FDA-Public Use
  Company Number: NO-JNJFOC-20091002301

PATIENT
  Age: 40 Day
  Sex: Female
  Weight: 4.74 kg

DRUGS (3)
  1. TOPIMAX [Suspect]
     Indication: EPILEPSY
     Route: 064
  2. TOPIMAX [Suspect]
     Indication: FOETAL EXPOSURE DURING PREGNANCY
     Route: 064
  3. TOPIMAX [Suspect]
     Indication: EXPOSURE DURING BREAST FEEDING
     Route: 064

REACTIONS (4)
  - Diarrhoea [Recovered/Resolved]
  - Foetal exposure during pregnancy [Recovered/Resolved]
  - Exposure during breast feeding [Recovered/Resolved]
  - Weight gain poor [Unknown]
